FAERS Safety Report 7248727-0 (Version None)
Quarter: 2011Q1

REPORT INFORMATION
  Report Type: 
  Country: None (occurrence: None)
  Receive Date: 20110121
  Receipt Date: 20110121
  Transmission Date: 20110831
  Serious: Yes (Other)
  Sender: FDA-Public Use
  Company Number: None

PATIENT
  Sex: Female
  Weight: 74.8435 kg

DRUGS (2)
  1. COZAAR [Suspect]
     Indication: HYPERTENSION
     Dosage: 100 MG 1 TABLET ONCE A DAY
     Dates: start: 20100820, end: 20101218
  2. DIOVAN [Suspect]
     Indication: HYPERTENSION
     Dosage: 160 MG 1 TABLET ONCE A DAY
     Dates: start: 20101231

REACTIONS (8)
  - ACTIVITIES OF DAILY LIVING IMPAIRED [None]
  - PRESYNCOPE [None]
  - FEELING ABNORMAL [None]
  - DIZZINESS [None]
  - FATIGUE [None]
  - CHEST PAIN [None]
  - GAIT DISTURBANCE [None]
  - DYSPNOEA [None]
